FAERS Safety Report 5129304-4 (Version None)
Quarter: 2006Q4

REPORT INFORMATION
  Report Type: 
  Country: None (occurrence: None)
  Receive Date: 20061011
  Receipt Date: 20060926
  Transmission Date: 20070319
  Serious: Yes (Life-Threatening, Other)
  Sender: FDA-Public Use
  Company Number: 2006AL002983

PATIENT
  Age: 13 Year
  Sex: Female

DRUGS (3)
  1. FLUOXETINE [Suspect]
     Indication: ANXIETY
     Dosage: 20 MG; QD; PO
     Route: 048
  2. FLUOXETINE [Suspect]
     Indication: DEPRESSION
     Dosage: 20 MG; QD; PO
     Route: 048
  3. IBUPROFEN [Concomitant]

REACTIONS (5)
  - FLUID RETENTION [None]
  - INTENTIONAL OVERDOSE [None]
  - OFF LABEL USE [None]
  - SUICIDE ATTEMPT [None]
  - URINE OUTPUT DECREASED [None]
